FAERS Safety Report 5980196-0 (Version None)
Quarter: 2008Q4

REPORT INFORMATION
  Report Type: 
  Country: None (occurrence: None)
  Receive Date: 20081205
  Receipt Date: 20081107
  Transmission Date: 20090506
  Serious: Yes (Other)
  Sender: FDA-Public Use
  Company Number: BR-ASTRAZENECA-2008UW25094

PATIENT
  Age: 15 Year
  Sex: Female
  Weight: 71 kg

DRUGS (2)
  1. SEROQUEL [Suspect]
     Indication: PSYCHOTIC DISORDER
     Route: 048
     Dates: start: 20080925, end: 20081105
  2. FLUOXETINE HCL [Concomitant]
     Indication: DEPRESSION
     Route: 048
     Dates: start: 20080918, end: 20081022

REACTIONS (3)
  - HYPERPHAGIA [None]
  - INCREASED APPETITE [None]
  - WEIGHT INCREASED [None]
